FAERS Safety Report 18768325 (Version 1)
Quarter: 2021Q1

REPORT INFORMATION
  Report Type: Spontaneous
  Country: JP (occurrence: JP)
  Receive Date: 20210121
  Receipt Date: 20210121
  Transmission Date: 20210419
  Serious: Yes (Other)
  Sender: FDA-Public Use
  Company Number: JP-ASTRAZENECA-2021A009121

PATIENT
  Sex: Female

DRUGS (4)
  1. PREDNISOLONE. [Concomitant]
     Active Substance: PREDNISOLONE
     Dosage: 0.5DF UNKNOWN
     Route: 065
  2. BREZTRI [Suspect]
     Active Substance: BUDESONIDE\FORMOTEROL\GLYCOPYRRONIUM
     Route: 055
  3. PULMICORT TURBUHALER [Suspect]
     Active Substance: BUDESONIDE
     Route: 055
  4. HOKUNALIN [Concomitant]
     Active Substance: TULOBUTEROL

REACTIONS (5)
  - Drug delivery system issue [Unknown]
  - Nasal disorder [Unknown]
  - Palpitations [Unknown]
  - Dysphonia [Unknown]
  - Neoplasm malignant [Unknown]
